FAERS Safety Report 6509888-1 (Version None)
Quarter: 2009Q4

REPORT INFORMATION
  Report Type: 
  Country: None (occurrence: None)
  Receive Date: 20091222
  Receipt Date: 20091209
  Transmission Date: 20100525
  Serious: Yes (Hospitalization, Other)
  Sender: FDA-Public Use
  Company Number: PHHY2009DE54655

PATIENT

DRUGS (1)
  1. RITALIN T09447+ERCAP [Suspect]
     Indication: ATTENTION DEFICIT/HYPERACTIVITY DISORDER
     Dosage: UNK
     Route: 048
     Dates: end: 20091103

REACTIONS (3)
  - DECREASED ACTIVITY [None]
  - DECREASED APPETITE [None]
  - SOMNOLENCE [None]
